FAERS Safety Report 8156160-2 (Version None)
Quarter: 2012Q1

REPORT INFORMATION
  Report Type: 
  Country: None (occurrence: None)
  Receive Date: 20120222
  Receipt Date: 20120208
  Transmission Date: 20120608
  Serious: Yes (Hospitalization)
  Sender: FDA-Public Use
  Company Number: AR-MYLANLABS-2012S1002914

PATIENT
  Age: 79 Year
  Sex: Male

DRUGS (9)
  1. SIMVASTATIN [Concomitant]
     Dosage: 20 MG/DAY
     Route: 065
  2. LEVOFLOXACIN [Suspect]
     Indication: PNEUMONIA
     Dosage: 500 MG/DAY
     Route: 065
  3. LOSARTAN POTASSIUM [Concomitant]
     Dosage: 100 MG/DAY
     Route: 065
  4. AMLODIPINE [Concomitant]
     Dosage: 10 MG/DAY
     Route: 065
  5. ASPIRIN [Concomitant]
     Dosage: 100 MG/DAY
     Route: 065
  6. GLYBURIDE [Concomitant]
     Dosage: 10 MG/DAY
     Route: 065
  7. HYDROCHLOROTHIAZIDE [Concomitant]
     Dosage: 25 MG/DAY
     Route: 065
  8. ATENOLOL [Concomitant]
     Dosage: 100 MG/DAY
     Route: 065
  9. METFORMIN HCL [Concomitant]
     Dosage: 1700 MG/DAY
     Route: 065

REACTIONS (4)
  - CONFUSIONAL STATE [None]
  - HALLUCINATION, VISUAL [None]
  - TOXICITY TO VARIOUS AGENTS [None]
  - PSYCHOMOTOR HYPERACTIVITY [None]
